FAERS Safety Report 15280834 (Version 1)
Quarter: 2018Q3

REPORT INFORMATION
  Report Type: Spontaneous
  Country: US (occurrence: US)
  Receive Date: 20180731
  Receipt Date: 20180731
  Transmission Date: 20181010
  Serious: No
  Sender: FDA-Public Use
  Company Number: None

PATIENT
  Age: 73 Year
  Sex: Male

DRUGS (10)
  1. BENADRYL [Concomitant]
     Active Substance: DIPHENHYDRAMINE HYDROCHLORIDE
  2. LUPRON [Concomitant]
     Active Substance: LEUPROLIDE ACETATE
  3. FLOMAX [Concomitant]
     Active Substance: TAMSULOSIN HYDROCHLORIDE
  4. POTASSIUM GLUCONATE [Concomitant]
     Active Substance: POTASSIUM GLUCONATE
  5. ZYTIGA [Suspect]
     Active Substance: ABIRATERONE ACETATE
     Indication: PROSTATE CANCER
     Route: 048
     Dates: start: 20171207
  6. PREDNISONE. [Concomitant]
     Active Substance: PREDNISONE
  7. XARELTO [Concomitant]
     Active Substance: RIVAROXABAN
  8. MAGNESIUM OXIDE. [Concomitant]
     Active Substance: MAGNESIUM OXIDE
  9. XGEVA [Concomitant]
     Active Substance: DENOSUMAB
  10. CALCIUM 600?D [Concomitant]

REACTIONS (1)
  - Thrombosis [None]

NARRATIVE: CASE EVENT DATE: 20180625
